FAERS Safety Report 9468082 (Version 1)
Quarter: 2013Q3

REPORT INFORMATION
  Report Type: Spontaneous
  Country: SE (occurrence: SE)
  Receive Date: 20130821
  Receipt Date: 20130821
  Transmission Date: 20140515
  Serious: Yes (Disabling, Other)
  Sender: FDA-Public Use
  Company Number: SE-ELI_LILLY_AND_COMPANY-SE201308004115

PATIENT
  Age: 45 Year
  Sex: Female

DRUGS (7)
  1. ZYPREXA [Suspect]
     Dosage: 2.5 MG, UNKNOWN
  2. CISORDINOL [Suspect]
     Dosage: 2 MG, UNKNOWN
     Dates: start: 19930622
  3. CISORDINOL [Suspect]
     Dosage: 2 DF, UNKNOWN
  4. TRILAFON [Suspect]
     Dosage: UNK, UNKNOWN
     Dates: start: 19930622
  5. TRILAFON [Suspect]
     Dosage: 1 DF, UNKNOWN
  6. RISPERDAL [Suspect]
     Dosage: 2 MG, UNKNOWN
  7. ABILIFY [Concomitant]
     Dosage: 5 MG, UNKNOWN

REACTIONS (9)
  - Spinal column stenosis [Not Recovered/Not Resolved]
  - Scoliosis [Not Recovered/Not Resolved]
  - Vitreous disorder [Not Recovered/Not Resolved]
  - Eye injury [Not Recovered/Not Resolved]
  - Periodontitis [Not Recovered/Not Resolved]
  - Hypophagia [Not Recovered/Not Resolved]
  - Fatigue [Not Recovered/Not Resolved]
  - Hunger [Not Recovered/Not Resolved]
  - Dizziness [Not Recovered/Not Resolved]
